FAERS Safety Report 7202562-8 (Version None)
Quarter: 2010Q4

REPORT INFORMATION
  Report Type: 
  Country: None (occurrence: None)
  Receive Date: 20101229
  Receipt Date: 20101222
  Transmission Date: 20110411
  Serious: Yes (Disabling)
  Sender: FDA-Public Use
  Company Number: GB-MERCK-1012GBR00093

PATIENT
  Age: 64 Year
  Sex: Female

DRUGS (2)
  1. FOSAMAX [Suspect]
     Indication: OSTEOPOROSIS
     Route: 048
     Dates: start: 20100629, end: 20100721
  2. ETANERCEPT [Concomitant]
     Indication: PSORIATIC ARTHROPATHY
     Route: 030

REACTIONS (1)
  - DIARRHOEA HAEMORRHAGIC [None]
